FAERS Safety Report 5934202-X (Version None)
Quarter: 2008Q4

REPORT INFORMATION
  Report Type: 
  Country: None (occurrence: None)
  Receive Date: 20081029
  Receipt Date: 20081017
  Transmission Date: 20090506
  Serious: No
  Sender: FDA-Public Use
  Company Number: JP-EISAI MEDICAL RESEARCH-E2020-03518-SPO-JP

PATIENT
  Age: 83 Year
  Sex: Male

DRUGS (7)
  1. ARICEPT [Suspect]
     Indication: DRUG USE FOR UNKNOWN INDICATION
     Route: 048
     Dates: end: 20080724
  2. ARICEPT [Suspect]
     Route: 048
     Dates: start: 20080725, end: 20080101
  3. ARICEPT [Suspect]
     Route: 048
     Dates: start: 20080101
  4. GRAMALIL [Suspect]
     Indication: DRUG USE FOR UNKNOWN INDICATION
     Dosage: UNKNOWN
     Route: 065
  5. DIGOSIN [Concomitant]
  6. NITRODERM [Concomitant]
  7. BIOFERMIN [Concomitant]

REACTIONS (1)
  - ARRHYTHMIA [None]
